FAERS Safety Report 9914916 (Version 6)
Quarter: 2014Q1

REPORT INFORMATION
  Report Type: Spontaneous
  Country: US (occurrence: US)
  Receive Date: 20140220
  Receipt Date: 20140331
  Transmission Date: 20141002
  Serious: No
  Sender: FDA-Public Use
  Company Number: US-PFIZER INC-2014047458

PATIENT
  Age: 80 Year
  Sex: Female
  Weight: 60.8 kg

DRUGS (1)
  1. DEPO-ESTRADIOL [Suspect]
     Dosage: UNK, EVERY TWO WEEKS
     Dates: start: 1972

REACTIONS (3)
  - Fatigue [Unknown]
  - Poor quality sleep [Unknown]
  - Headache [Unknown]
